FAERS Safety Report 6373415-2 (Version None)
Quarter: 2009Q3

REPORT INFORMATION
  Report Type: 
  Country: None (occurrence: None)
  Receive Date: 20090924
  Receipt Date: 20090316
  Transmission Date: 20100115
  Serious: No
  Sender: FDA-Public Use
  Company Number: US-ASTRAZENECA-2009UW06778

PATIENT
  Age: 83 Year
  Sex: Female

DRUGS (1)
  1. SEROQUEL XR [Suspect]
     Indication: AGITATION
     Route: 048

REACTIONS (2)
  - AGITATION [None]
  - DRUG INEFFECTIVE [None]
